FAERS Safety Report 5271975-6 (Version None)
Quarter: 2007Q1

REPORT INFORMATION
  Report Type: 
  Country: None (occurrence: None)
  Receive Date: 20070322
  Receipt Date: 20070310
  Transmission Date: 20070707
  Serious: Yes (Hospitalization)
  Sender: FDA-Public Use
  Company Number: DE-JNJFOC-20070102973

PATIENT
  Age: 72 Year
  Sex: Female

DRUGS (14)
  1. REMICADE [Suspect]
     Route: 042
  2. REMICADE [Suspect]
     Route: 042
  3. REMICADE [Suspect]
     Route: 042
  4. REMICADE [Suspect]
     Indication: TEMPORAL ARTERITIS
     Route: 042
  5. REMICADE [Suspect]
     Indication: VASCULITIS
     Route: 042
  6. MTX [Concomitant]
     Dosage: 15-20 MG
     Route: 065
  7. FOLIC ACID [Concomitant]
     Route: 065
  8. DECORTIN H [Concomitant]
     Route: 065
  9. EUTHYROX [Concomitant]
     Route: 065
  10. ACTONEL [Concomitant]
     Route: 065
  11. ASPIRIN [Concomitant]
     Route: 065
  12. PLAVIX [Concomitant]
     Route: 065
  13. CONCOR [Concomitant]
     Route: 065
  14. AUGMENTIN '125' [Concomitant]
     Dosage: 875/125
     Route: 065

REACTIONS (14)
  - DISSEMINATED TUBERCULOSIS [None]
  - ENCEPHALITIS [None]
  - ENTEROCOCCAL INFECTION [None]
  - HEPATIC ENZYME INCREASED [None]
  - MENINGITIS TUBERCULOUS [None]
  - NAUSEA [None]
  - PERONEAL NERVE PALSY [None]
  - PSYCHOTIC DISORDER [None]
  - SEPSIS [None]
  - TUBERCULOSIS OF CENTRAL NERVOUS SYSTEM [None]
  - URINARY TRACT INFECTION [None]
  - URTICARIA [None]
  - VASCULITIS [None]
  - VOMITING [None]
